FAERS Safety Report 24631706 (Version 1)
Quarter: 2024Q4

REPORT INFORMATION
  Report Type: Spontaneous
  Country: US (occurrence: None)
  Receive Date: 20241118
  Receipt Date: 20241118
  Transmission Date: 20250114
  Serious: Yes (Hospitalization)
  Sender: Public
  Company Number: None

PATIENT
  Sex: Female

DRUGS (1)
  1. TERIPARATIDE ACETATE [Suspect]
     Active Substance: TERIPARATIDE ACETATE
     Indication: Pneumonia
     Dosage: 20MGCG ONCE DAILY SC
     Route: 058
     Dates: start: 202401

REACTIONS (2)
  - Muscle spasms [None]
  - Abdominal pain upper [None]
